FAERS Safety Report 19078084 (Version 1)
Quarter: 2021Q1

REPORT INFORMATION
  Report Type: Spontaneous
  Country: US (occurrence: US)
  Receive Date: 20210331
  Receipt Date: 20210331
  Transmission Date: 20210420
  Serious: Yes (Hospitalization)
  Sender: FDA-Public Use
  Company Number: None

PATIENT
  Age: 73 Year
  Sex: Male

DRUGS (1)
  1. AXITINIB (AXITINIB 5MG TAB) [Suspect]
     Active Substance: AXITINIB
     Indication: RENAL CELL CARCINOMA
     Route: 048
     Dates: start: 20210309, end: 20210325

REACTIONS (7)
  - Dehydration [None]
  - Adverse drug reaction [None]
  - Fatigue [None]
  - Acute kidney injury [None]
  - Hypophagia [None]
  - Metastasis [None]
  - Disease progression [None]

NARRATIVE: CASE EVENT DATE: 20210325
